FAERS Safety Report 16145442 (Version 1)
Quarter: 2019Q2

REPORT INFORMATION
  Report Type: Report from Study
  Country: US (occurrence: US)
  Receive Date: 20190402
  Receipt Date: 20190402
  Transmission Date: 20190711
  Serious: Yes (Other)
  Sender: FDA-Public Use
  Company Number: US-SA-2019SA086657

PATIENT
  Age: 79 Year
  Sex: Female

DRUGS (1)
  1. INSULIN GLARGINE [Suspect]
     Active Substance: INSULIN GLARGINE
     Indication: DIABETES MELLITUS
     Dosage: UNK
     Dates: start: 2003

REACTIONS (9)
  - Blindness unilateral [Not Recovered/Not Resolved]
  - Fall [Unknown]
  - Atrial fibrillation [Not Recovered/Not Resolved]
  - Hip fracture [Not Recovered/Not Resolved]
  - Brain operation [Unknown]
  - Scar [Not Recovered/Not Resolved]
  - Upper limb fracture [Recovered/Resolved]
  - Upper limb fracture [Not Recovered/Not Resolved]
  - Neoplasm malignant [Not Recovered/Not Resolved]
